FAERS Safety Report 11854882 (Version 2)
Quarter: 2016Q1

REPORT INFORMATION
  Report Type: Report from Study
  Country: US (occurrence: US)
  Receive Date: 20151221
  Receipt Date: 20160107
  Transmission Date: 20160526
  Serious: Yes (Other)
  Sender: FDA-Public Use
  Company Number: US-ROCHE-1677128

PATIENT
  Sex: Male

DRUGS (1)
  1. NUTROPIN AQ [Suspect]
     Active Substance: SOMATROPIN
     Indication: HYPOPITUITARISM
     Route: 058
     Dates: start: 20080101

REACTIONS (5)
  - Device breakage [Unknown]
  - Drug dose omission [Unknown]
  - Growth retardation [Unknown]
  - Cerebrovascular accident [Unknown]
  - Underdose [Unknown]
